FAERS Safety Report 23132764 (Version 2)
Quarter: 2023Q4

REPORT INFORMATION
  Report Type: Other
  Country: CA (occurrence: CA)
  Receive Date: 20231101
  Receipt Date: 20231115
  Transmission Date: 20240109
  Serious: Yes (Other)
  Sender: FDA-Public Use
  Company Number: CA-TOLMAR, INC.-23CA044300

PATIENT
  Sex: Male

DRUGS (4)
  1. ELIGARD [Suspect]
     Active Substance: LEUPROLIDE ACETATE
     Indication: Prostate cancer
     Dosage: 22.5 MILLIGRAM, Q 3 MONTH
     Route: 058
     Dates: start: 20230809
  2. ELIGARD [Suspect]
     Active Substance: LEUPROLIDE ACETATE
     Dosage: 22.5 MILLIGRAM, Q 3 MONTH
     Route: 058
     Dates: start: 20231104
  3. ELIGARD [Suspect]
     Active Substance: LEUPROLIDE ACETATE
     Indication: Prostate cancer
     Dosage: UNK
  4. RADIATION THERAPY [Suspect]
     Active Substance: RADIATION THERAPY
     Indication: Product used for unknown indication
     Dosage: UNK

REACTIONS (5)
  - Urinary retention [Unknown]
  - Hot flush [Not Recovered/Not Resolved]
  - Night sweats [Unknown]
  - Asthenia [Unknown]
  - Weight increased [Unknown]
